FAERS Safety Report 25272491 (Version 1)
Quarter: 2025Q2

REPORT INFORMATION
  Report Type: Spontaneous
  Country: US (occurrence: None)
  Receive Date: 20250505
  Receipt Date: 20250505
  Transmission Date: 20250717
  Serious: Yes (Hospitalization)
  Sender: FDA-CTU
  Company Number: None

PATIENT
  Sex: Male

DRUGS (2)
  1. AMINOCAPROIC ACID [Suspect]
     Active Substance: AMINOCAPROIC ACID
     Indication: Factor VIII deficiency
     Route: 048
     Dates: start: 20220816
  2. AMINOCAPROIC ACID [Suspect]
     Active Substance: AMINOCAPROIC ACID

REACTIONS (2)
  - Weight increased [None]
  - Asthma [None]
